FAERS Safety Report 25845826 (Version 2)
Quarter: 2025Q4

REPORT INFORMATION
  Report Type: Spontaneous
  Country: EU (occurrence: EU)
  Receive Date: 20250925
  Receipt Date: 20251105
  Transmission Date: 20260118
  Serious: Yes (Hospitalization, Other)
  Sender: RANBAXY
  Company Number: EU-SUN PHARMACEUTICAL INDUSTRIES LTD-2025R1-519271

PATIENT
  Age: 48 Year
  Sex: Male

DRUGS (1)
  1. RANOLAZINE [Suspect]
     Active Substance: RANOLAZINE
     Indication: Microvascular coronary artery disease
     Dosage: 375 MILLIGRAM, BID
     Route: 065

REACTIONS (1)
  - Brugada syndrome [Recovered/Resolved]
